FAERS Safety Report 20509052 (Version 1)
Quarter: 2022Q1

REPORT INFORMATION
  Report Type: Spontaneous
  Country: TW (occurrence: TW)
  Receive Date: 20220223
  Receipt Date: 20220223
  Transmission Date: 20220423
  Serious: Yes (Death)
  Sender: FDA-Public Use
  Company Number: TW-PFIZER INC-202200309269

PATIENT

DRUGS (1)
  1. LORLATINIB [Suspect]
     Active Substance: LORLATINIB
     Dosage: 100 MG, DAILY
     Route: 048
     Dates: start: 20210916

REACTIONS (1)
  - Death [Fatal]

NARRATIVE: CASE EVENT DATE: 20220214
